FAERS Safety Report 14669495 (Version 1)
Quarter: 2018Q1

REPORT INFORMATION
  Report Type: Spontaneous
  Country: IT (occurrence: IT)
  Receive Date: 20180322
  Receipt Date: 20180322
  Transmission Date: 20180509
  Serious: Yes (Other)
  Sender: FDA-Public Use
  Company Number: IT-MYLANLABS-2018M1017085

PATIENT
  Age: 39 Year
  Sex: Female

DRUGS (2)
  1. TRETINOIN. [Suspect]
     Active Substance: TRETINOIN
     Indication: ACUTE PROMYELOCYTIC LEUKAEMIA
     Dosage: INDUCTION THERAPY
     Route: 065
  2. ARSENIC TRIOXIDE [Suspect]
     Active Substance: ARSENIC TRIOXIDE
     Indication: ACUTE PROMYELOCYTIC LEUKAEMIA
     Dosage: INDUCTION THERAPY
     Route: 065

REACTIONS (4)
  - Pericardial effusion [Recovered/Resolved]
  - Sinus tachycardia [Recovered/Resolved]
  - Pericardial fibrosis [Recovered/Resolved]
  - Pericarditis [Recovered/Resolved]
